FAERS Safety Report 4578067-X (Version None)
Quarter: 2005Q1

REPORT INFORMATION
  Report Type: 
  Country: None (occurrence: None)
  Receive Date: 20050209
  Receipt Date: 20050125
  Transmission Date: 20050727
  Serious: Yes (Hospitalization)
  Sender: FDA-Public Use
  Company Number: FR_050105699

PATIENT
  Age: 55 Year
  Sex: Female

DRUGS (1)
  1. EVISTA [Suspect]
     Indication: OSTEOPOROSIS
     Dosage: 60 MG DAY
     Dates: start: 20010101, end: 20030101

REACTIONS (3)
  - BREAST CANCER FEMALE [None]
  - BREAST CANCER STAGE III [None]
  - OESTROGEN RECEPTOR ASSAY POSITIVE [None]
